FAERS Safety Report 11333543 (Version 1)
Quarter: 2015Q3

REPORT INFORMATION
  Report Type: Spontaneous
  Country: US (occurrence: US)
  Receive Date: 20150803
  Receipt Date: 20150803
  Transmission Date: 20151125
  Serious: Yes (Hospitalization)
  Sender: FDA-Public Use
  Company Number: US-ELI_LILLY_AND_COMPANY-US200801004672

PATIENT
  Sex: Female
  Weight: 79.37 kg

DRUGS (1)
  1. ZYPREXA [Suspect]
     Active Substance: OLANZAPINE
     Dosage: 100 MG, 2/D
     Dates: start: 2000

REACTIONS (3)
  - Diabetes mellitus [Not Recovered/Not Resolved]
  - Prescribed overdose [Unknown]
  - Hypertension [Unknown]

NARRATIVE: CASE EVENT DATE: 2000
